FAERS Safety Report 22294452 (Version 1)
Quarter: 2023Q2

REPORT INFORMATION
  Report Type: Spontaneous
  Country: US (occurrence: US)
  Receive Date: 20230508
  Receipt Date: 20230508
  Transmission Date: 20230722
  Serious: No
  Sender: FDA-Public Use
  Company Number: US-ASTELLAS-2022US019719

PATIENT
  Sex: Female

DRUGS (4)
  1. LEXISCAN [Suspect]
     Active Substance: REGADENOSON
     Indication: Positron emission tomogram
     Dosage: UNK UNK, OTHER (ONCE)
     Route: 065
     Dates: start: 20220526, end: 20220526
  2. LEXISCAN [Suspect]
     Active Substance: REGADENOSON
     Indication: Positron emission tomogram
     Dosage: UNK UNK, OTHER (ONCE)
     Route: 065
     Dates: start: 20220526, end: 20220526
  3. LEXISCAN [Suspect]
     Active Substance: REGADENOSON
     Indication: Positron emission tomogram
     Dosage: UNK UNK, OTHER (ONCE)
     Route: 065
     Dates: start: 20220526, end: 20220526
  4. LEXISCAN [Suspect]
     Active Substance: REGADENOSON
     Indication: Positron emission tomogram
     Dosage: UNK UNK, OTHER (ONCE)
     Route: 065
     Dates: start: 20220526, end: 20220526

REACTIONS (1)
  - Hypoaesthesia [Unknown]

NARRATIVE: CASE EVENT DATE: 20220526
